FAERS Safety Report 20642941 (Version 1)
Quarter: 2022Q1

REPORT INFORMATION
  Report Type: Spontaneous
  Country: US (occurrence: None)
  Receive Date: 20220325
  Receipt Date: 20220325
  Transmission Date: 20220423
  Serious: Yes (Hospitalization)
  Sender: FDA-Public Use
  Company Number: None

PATIENT
  Age: 56 Year
  Sex: Male

DRUGS (1)
  1. ABIRATERONE [Suspect]
     Active Substance: ABIRATERONE
     Dosage: FREQUENCY : DAILY;?
     Route: 048
     Dates: start: 202112

REACTIONS (6)
  - Dizziness [None]
  - Pyrexia [None]
  - Hypotension [None]
  - Heart rate increased [None]
  - Loss of consciousness [None]
  - Pneumonia [None]

NARRATIVE: CASE EVENT DATE: 20220321
